FAERS Safety Report 7631201-7 (Version None)
Quarter: 2011Q3

REPORT INFORMATION
  Report Type: 
  Country: None (occurrence: None)
  Receive Date: 20110725
  Receipt Date: 20110721
  Transmission Date: 20111222
  Serious: Yes (Life-Threatening, Other)
  Sender: FDA-Public Use
  Company Number: IT-JNJFOC-20110706063

PATIENT
  Sex: Male

DRUGS (5)
  1. RISPERDAL [Suspect]
     Indication: AFFECTIVE DISORDER
     Route: 030
     Dates: start: 20110616, end: 20110616
  2. EN [Concomitant]
     Indication: PRODUCT USED FOR UNKNOWN INDICATION
     Route: 048
     Dates: start: 20110613, end: 20110617
  3. RISPERDAL [Suspect]
     Dosage: 1 MG/ML
     Route: 048
     Dates: start: 20110617, end: 20110620
  4. AKINETON [Suspect]
     Indication: PRODUCT USED FOR UNKNOWN INDICATION
     Route: 048
  5. ABILIFY [Concomitant]
     Indication: PRODUCT USED FOR UNKNOWN INDICATION
     Route: 050
     Dates: start: 20110613, end: 20110615

REACTIONS (5)
  - SOPOR [None]
  - HYPERPYREXIA [None]
  - DYSPHAGIA [None]
  - HYPOTENSION [None]
  - COMA [None]
